FAERS Safety Report 4704253-1 (Version None)
Quarter: 2005Q2

REPORT INFORMATION
  Report Type: 
  Country: None (occurrence: None)
  Receive Date: 20050628
  Receipt Date: 20050617
  Transmission Date: 20051028
  Serious: Yes (Other)
  Sender: FDA-Public Use
  Company Number: 2005090324

PATIENT
  Age: 62 Year
  Sex: Male

DRUGS (8)
  1. SPIRONOLACTONE [Suspect]
     Indication: CARDIAC FAILURE CONGESTIVE
     Dosage: 50 MG (DAILY)
  2. DILTIAZEM HYDROCHLORIDE [Suspect]
     Indication: MYOCARDIAL ISCHAEMIA
     Dosage: 180 MG (DAILY), ORAL
     Route: 048
  3. METFORMIN HCL [Suspect]
     Indication: DIABETES MELLITUS
     Dosage: 2 GRAM (DAILY)
  4. ISOSORBIDE DINITRATE [Suspect]
     Indication: MYOCARDIAL ISCHAEMIA
     Dosage: 120 MG
  5. ACETYLSALICYLIC AICD (ACETYLSALICYLIC ACID) [Concomitant]
     Indication: MYOCARDIAL ISCHAEMIA
     Dosage: 100 MG (DAILY)
  6. FUROSEMIDE [Suspect]
     Indication: CARDIAC FAILURE CONGESTIVE
     Dosage: 80 MG (DAILY)
  7. AMIODARONE HCL [Suspect]
     Indication: ARRHYTHMIA
     Dosage: 200 MG (DAILY)
  8. PERHEXILLINE MALEATE (PERHEXILLINE MALEATE) [Suspect]
     Indication: MYOCARDIAL ISCHAEMIA
     Dosage: 100 G (DAILY)

REACTIONS (4)
  - HEPATIC CIRRHOSIS [None]
  - HEPATIC FIBROSIS [None]
  - HEPATIC NECROSIS [None]
  - LIVER DISORDER [None]
